FAERS Safety Report 21722062 (Version 1)
Quarter: 2022Q4

REPORT INFORMATION
  Report Type: Spontaneous
  Country: US (occurrence: None)
  Receive Date: 20221212
  Receipt Date: 20221212
  Transmission Date: 20230113
  Serious: No
  Sender: FDA-Public Use
  Company Number: None

PATIENT
  Age: 80 Year
  Sex: Female
  Weight: 55.2 kg

DRUGS (18)
  1. LENALIDOMIDE [Suspect]
     Active Substance: LENALIDOMIDE
     Indication: Plasma cell myeloma
     Dosage: OTHER FREQUENCY : 21DOF28DAYS;?
     Route: 048
     Dates: start: 202203
  2. ACETAMINOPHEN [Concomitant]
  3. ACYCLOVIR [Concomitant]
  4. ASPIRIN LOW [Concomitant]
  5. CALCIUM CARBONATE [Concomitant]
  6. CETIRIZINE [Concomitant]
  7. CRANBERRY EXTRACT [Concomitant]
  8. DEXAMETHASONE [Concomitant]
  9. FLUTICASONE [Concomitant]
  10. FOLIC ACID [Concomitant]
  11. LASIX [Concomitant]
  12. LEVOTHYROXINE [Concomitant]
  13. LINISOPRIL [Concomitant]
  14. METRONIDAZOLE [Concomitant]
  15. MULTIVITAMIN [Concomitant]
  16. SALINE NASAL SPRAY [Concomitant]
  17. SPIRONOLACTONE [Concomitant]
  18. VITAMIN D3 COMPLETE [Concomitant]

REACTIONS (2)
  - COVID-19 [None]
  - Therapy interrupted [None]

NARRATIVE: CASE EVENT DATE: 20221206
